FAERS Safety Report 7109962-5 (Version None)
Quarter: 2010Q4

REPORT INFORMATION
  Report Type: 
  Country: None (occurrence: None)
  Receive Date: 20101118
  Receipt Date: 20101104
  Transmission Date: 20110411
  Serious: Yes (Hospitalization)
  Sender: FDA-Public Use
  Company Number: BR-BAYER-201020425LA

PATIENT
  Age: 21 Year
  Sex: Female
  Weight: 84 kg

DRUGS (1)
  1. MIRANOVA [Suspect]
     Indication: ORAL CONTRACEPTION
     Route: 048
     Dates: start: 20080101, end: 20101101

REACTIONS (2)
  - MENORRHAGIA [None]
  - OROPHARYNGEAL PAIN [None]
